FAERS Safety Report 5056236-2 (Version None)
Quarter: 2006Q3

REPORT INFORMATION
  Report Type: 
  Country: None (occurrence: None)
  Receive Date: 20060717
  Receipt Date: 20060706
  Transmission Date: 20061208
  Serious: Yes (Other)
  Sender: FDA-Public Use
  Company Number: 2005-09-0042

PATIENT
  Age: 22 Year

DRUGS (4)
  1. INTRON A [Suspect]
     Dosage: 6 MIU QD INTRAMUSCULAR; 6 MIU TIW INTRAMUSCULAR
     Route: 030
     Dates: start: 20041020, end: 20041107
  2. INTRON A [Suspect]
     Dosage: 6 MIU QD INTRAMUSCULAR; 6 MIU TIW INTRAMUSCULAR
     Route: 030
     Dates: start: 20041020, end: 20050303
  3. INTRON A [Suspect]
     Dosage: 6 MIU QD INTRAMUSCULAR; 6 MIU TIW INTRAMUSCULAR
     Route: 030
     Dates: start: 20041108, end: 20050303
  4. REBETOL [Suspect]
     Dosage: 600 MG ORAL
     Route: 048
     Dates: start: 20041020, end: 20050228

REACTIONS (9)
  - ABORTION THREATENED [None]
  - CERVICITIS [None]
  - FORCEPS DELIVERY [None]
  - IRON DEFICIENCY ANAEMIA [None]
  - PREGNANCY OF PARTNER [None]
  - THREATENED LABOUR [None]
  - TRANSMISSION OF DRUG VIA SEMEN [None]
  - UTERINE HAEMORRHAGE [None]
  - VACUUM EXTRACTOR DELIVERY [None]
